FAERS Safety Report 17284031 (Version 1)
Quarter: 2020Q1

REPORT INFORMATION
  Report Type: Spontaneous
  Country: US (occurrence: US)
  Receive Date: 20200117
  Receipt Date: 20200117
  Transmission Date: 20200409
  Serious: No
  Sender: FDA-Public Use
  Company Number: US-SUNOVION-2020SUN000115

PATIENT
  Age: 29 Year
  Sex: Female

DRUGS (3)
  1. LATUDA [Suspect]
     Active Substance: LURASIDONE HYDROCHLORIDE
     Dosage: 20 MG (20 MG DOSAGE WAS MENTIONED IN EVENT DESCRIPTION SECTION)
     Route: 048
  2. ABILIFY [Concomitant]
     Active Substance: ARIPIPRAZOLE
     Dosage: UNK
  3. LATUDA [Suspect]
     Active Substance: LURASIDONE HYDROCHLORIDE
     Indication: BIPOLAR DISORDER
     Dosage: 40 MG (ONLY 40 MG DOSAGE INCLUDED IN SUSPECT DRUG SECTION OF AE FORM)
     Route: 048

REACTIONS (1)
  - Oedema peripheral [Unknown]
